FAERS Safety Report 4424534-9 (Version None)
Quarter: 2004Q3

REPORT INFORMATION
  Report Type: 
  Country: None (occurrence: None)
  Receive Date: 20040719
  Receipt Date: 20031209
  Transmission Date: 20050211
  Serious: Yes (Hospitalization)
  Sender: FDA-Public Use
  Company Number: 188169

PATIENT
  Age: 41 Year
  Sex: Female
  Weight: 43.0917 kg

DRUGS (10)
  1. AVONEX [Suspect]
     Indication: MULTIPLE SCLEROSIS
     Dosage: 30 MCG QW IM
     Route: 030
     Dates: start: 19990101, end: 19990101
  2. AVONEX [Suspect]
     Indication: MULTIPLE SCLEROSIS
     Dosage: 7.5 MCG QW IM
     Route: 030
     Dates: start: 19990101, end: 20030101
  3. AVONEX [Suspect]
     Indication: MULTIPLE SCLEROSIS
     Dosage: 12 MCG QW IM
     Route: 030
     Dates: start: 20030101, end: 20031001
  4. AVONEX [Suspect]
     Indication: MULTIPLE SCLEROSIS
     Dates: start: 20031001, end: 20031125
  5. TRILEPTAL [Concomitant]
  6. DANTRIUM [Concomitant]
  7. ZANTAC [Concomitant]
  8. DITROPAN [Concomitant]
  9. COPAXONE [Concomitant]
  10. METHOTREXATE [Concomitant]

REACTIONS (1)
  - MULTIPLE SCLEROSIS RELAPSE [None]
